FAERS Safety Report 6104240-5 (Version None)
Quarter: 2009Q1

REPORT INFORMATION
  Report Type: 
  Country: None (occurrence: None)
  Receive Date: 20090305
  Receipt Date: 20090220
  Transmission Date: 20090719
  Serious: Yes (Hospitalization)
  Sender: FDA-Public Use
  Company Number: FR-ELI_LILLY_AND_COMPANY-FR200901004833

PATIENT
  Age: 71 Year
  Sex: Female

DRUGS (6)
  1. FORTEO [Suspect]
     Indication: OSTEOPOROTIC FRACTURE
     Dosage: 20 UG, DAILY (1/D)
     Route: 058
     Dates: start: 20080501, end: 20081225
  2. ASPEGIC 325 [Concomitant]
     Dosage: UNK, UNKNOWN
     Route: 065
  3. TAHOR [Concomitant]
     Dosage: UNK, UNKNOWN
     Route: 065
  4. DEBRIDAT [Concomitant]
     Dosage: UNK, UNKNOWN
     Route: 065
  5. LEXOMIL [Concomitant]
     Dosage: UNK, UNKNOWN
     Route: 065
  6. ACETAMINOPHEN [Concomitant]
     Dosage: UNK, UNKNOWN
     Route: 065

REACTIONS (1)
  - INTESTINAL OBSTRUCTION [None]
